FAERS Safety Report 9407832 (Version 1)
Quarter: 2013Q3

REPORT INFORMATION
  Report Type: Spontaneous
  Country: BE (occurrence: BE)
  Receive Date: 20130718
  Receipt Date: 20130718
  Transmission Date: 20140515
  Serious: Yes (Death, Other)
  Sender: FDA-Public Use
  Company Number: BE-TEVA-418359ISR

PATIENT
  Age: 58 Year
  Sex: Male

DRUGS (5)
  1. TEMOZOLOMIDE [Suspect]
     Indication: GLIOBLASTOMA
     Dosage: 75 MG/M2 DAILY;
     Route: 065
     Dates: start: 2010
  2. TEMOZOLOMIDE [Suspect]
     Dosage: 150 MG/M2 DAILY; FOR 5D OF 28-D CYCLE (300 MG/CYCLE; ADJUVANT THERAPY)
     Route: 065
     Dates: start: 2010
  3. TEMOZOLOMIDE [Suspect]
     Dosage: 100 MG/M2 DAILY; FOR 21D OF 28-D CYCLE (EXTENDED DOSING SCHEDULE)
     Route: 065
     Dates: start: 2010
  4. KEPPRA [Concomitant]
     Indication: EPILEPSY
     Route: 065
     Dates: start: 2010
  5. TERRAMYCIN [Concomitant]
     Indication: EYE INFECTION
     Route: 047
     Dates: start: 2012

REACTIONS (12)
  - Diffuse large B-cell lymphoma [Fatal]
  - Lymphopenia [Unknown]
  - Leukopenia [Unknown]
  - Neutropenia [Recovered/Resolved]
  - Myelodysplastic syndrome [Unknown]
  - Toxicity to various agents [Unknown]
  - Herpes zoster [Unknown]
  - Pneumonia [Unknown]
  - Eye infection [Unknown]
  - Sinusitis [Unknown]
  - Headache [Unknown]
  - Pyrexia [Unknown]
